FAERS Safety Report 7804447-2 (Version None)
Quarter: 2011Q4

REPORT INFORMATION
  Report Type: 
  Country: None (occurrence: None)
  Receive Date: 20111010
  Receipt Date: 20110927
  Transmission Date: 20120403
  Serious: Yes (Hospitalization, Other)
  Sender: FDA-Public Use
  Company Number: US-BAYER-2011-007551

PATIENT
  Sex: Female
  Weight: 52.154 kg

DRUGS (10)
  1. IRON [Concomitant]
     Indication: GASTROINTESTINAL HAEMORRHAGE
  2. DROSPIRENONE AND ETHINYL ESTRADIOL [Suspect]
     Indication: PREMENSTRUAL SYNDROME
     Dosage: UNK
     Dates: start: 20060101
  3. PROCRIT [Concomitant]
     Indication: GASTROINTESTINAL HAEMORRHAGE
  4. HEPARIN [Concomitant]
     Indication: THROMBOSIS
  5. VASOPRESSIN AND ANALOGUES [Concomitant]
  6. ASACOL [Concomitant]
     Indication: NAUSEA
  7. ASACOL [Concomitant]
     Indication: VOMITING
  8. PLAVIX [Concomitant]
     Indication: CEREBROVASCULAR ACCIDENT PROPHYLAXIS
  9. YASMIN [Suspect]
     Indication: PREMENSTRUAL SYNDROME
     Dosage: UNK
     Dates: start: 20060101
  10. REMERON [Concomitant]
     Indication: DEPRESSION

REACTIONS (5)
  - EMOTIONAL DISTRESS [None]
  - CHOLELITHIASIS [None]
  - PAIN [None]
  - INJURY [None]
  - PANCREATITIS [None]
